FAERS Safety Report 5448197-9 (Version None)
Quarter: 2007Q3

REPORT INFORMATION
  Report Type: 
  Country: None (occurrence: None)
  Receive Date: 20070907
  Receipt Date: 20070907
  Transmission Date: 20080115
  Serious: Yes (Other)
  Sender: FDA-Public Use
  Company Number: None

PATIENT
  Age: 14 Day
  Sex: Male
  Weight: 3.1752 kg

DRUGS (1)
  1. JOHNSONS BABY LOTION [Suspect]
     Indication: THERAPEUTIC SKIN CARE TOPICAL
     Dates: start: 20070820

REACTIONS (1)
  - LOSS OF CONSCIOUSNESS [None]
